FAERS Safety Report 8987252 (Version 1)
Quarter: 2012Q4

REPORT INFORMATION
  Report Type: 
  Country: FR (occurrence: GR)
  Receive Date: 20121226
  Receipt Date: 20121226
  Transmission Date: 20130627
  Serious: Yes (Hospitalization, Other)
  Sender: FDA-Public Use
  Company Number: GR-BRISTOL-MYERS SQUIBB COMPANY-17234147

PATIENT
  Age: 43 Year
  Sex: Male
  Weight: 72 kg

DRUGS (4)
  1. LYSODREN [Suspect]
     Indication: ADRENOCORTICAL CARCINOMA
     Dosage: Initial dose:2.5g and increased to 4.5g
     Route: 048
  2. HYDROCORTISONE [Concomitant]
     Dosage: 20-5-5
  3. FLUDROCORTISONE [Concomitant]
  4. VITAMIN D [Concomitant]

REACTIONS (7)
  - Malignant neoplasm progression [Unknown]
  - Adrenal insufficiency [Recovering/Resolving]
  - Malaise [Unknown]
  - Pruritus [Unknown]
  - Confusional state [Unknown]
  - Memory impairment [Unknown]
  - Influenza like illness [Unknown]
